FAERS Safety Report 26152746 (Version 1)
Quarter: 2025Q4

REPORT INFORMATION
  Report Type: Spontaneous
  Country: GB (occurrence: GB)
  Receive Date: 20251214
  Receipt Date: 20251214
  Transmission Date: 20260118
  Serious: Yes (Other)
  Sender: AUROBINDO
  Company Number: GB-MHRA-TPP5085257C65114YC1764584390664

PATIENT
  Age: 76 Year
  Sex: Female
  Weight: 83 kg

DRUGS (11)
  1. DULOXETINE [Suspect]
     Active Substance: DULOXETINE
     Indication: Ill-defined disorder
     Dosage: UNK
     Route: 065
  2. DULOXETINE [Concomitant]
     Active Substance: DULOXETINE
     Indication: Ill-defined disorder
     Dosage: 1 DOSAGE FORM, ONCE A DAY (TAKE ONE CAPSULE ONCE A DAY)
     Route: 065
     Dates: start: 20250918, end: 20251113
  3. SOLIFENACIN [Concomitant]
     Active Substance: SOLIFENACIN
     Indication: Ill-defined disorder
     Dosage: 1 DOSAGE FORM, ONCE A DAY (TAKE ONE TABLET EACH DAY FOR BLADDER PROBLEMS)
     Route: 065
     Dates: start: 20250918, end: 20251113
  4. FUROSEMIDE [Concomitant]
     Active Substance: FUROSEMIDE
     Indication: Ill-defined disorder
     Dosage: 2 DOSAGE FORM, EVERY MORNING (2 TO BE TAKEN EACH MORNING)
     Route: 065
     Dates: start: 20250922, end: 20251006
  5. ASPIRIN [Concomitant]
     Active Substance: ASPIRIN
     Indication: Ill-defined disorder
     Dosage: 1 DOSAGE FORM, DAILY (TAKE ONE DAILY)
     Route: 065
  6. ATORVASTATIN [Concomitant]
     Active Substance: ATORVASTATIN
     Indication: Ill-defined disorder
     Dosage: 1 DOSAGE FORM, DAILY (TAKE ONE DAILY)
     Route: 065
  7. ESTRIOL [Concomitant]
     Active Substance: ESTRIOL
     Indication: Ill-defined disorder
     Dosage: UNK (NSERT ONE APPLICATORFUL INTO THE VAGINA AT NIG)
     Route: 065
  8. IRBESARTAN [Concomitant]
     Active Substance: IRBESARTAN
     Indication: Ill-defined disorder
     Dosage: 1 DOSAGE FORM, ONCE A DAY (TAKE ONE ONCE DAILY)
     Route: 065
     Dates: start: 20250113
  9. OMEPRAZOLE [Concomitant]
     Active Substance: OMEPRAZOLE
     Indication: Ill-defined disorder
     Dosage: 1 DOSAGE FORM, TWO TIMES A DAY (TAKE ONE CAPSULE TWICE A DAY)
     Route: 065
     Dates: start: 20250113
  10. ACETAMINOPHEN [Concomitant]
     Active Substance: ACETAMINOPHEN
     Indication: Ill-defined disorder
     Dosage: UNK (TAKE 2 4 TIMES/DAY. MAX 8 IN 24 HOURS)
     Route: 065
  11. AMLODIPINE [Concomitant]
     Active Substance: AMLODIPINE BESYLATE
     Indication: Ill-defined disorder
     Dosage: 1 DOSAGE FORM, ONCE A DAY (TAKE ONE TABLET ONCE A DAY)
     Route: 065
     Dates: start: 20250430

REACTIONS (1)
  - Face oedema [Recovered/Resolved]

NARRATIVE: CASE EVENT DATE: 20251201
